FAERS Safety Report 7102485-9 (Version None)
Quarter: 2010Q4

REPORT INFORMATION
  Report Type: 
  Country: None (occurrence: None)
  Receive Date: 20101115
  Receipt Date: 20101104
  Transmission Date: 20110411
  Serious: Yes (Hospitalization)
  Sender: FDA-Public Use
  Company Number: FR-ROCHE-739389

PATIENT
  Sex: Male
  Weight: 68 kg

DRUGS (2)
  1. PEGASYS [Suspect]
     Indication: HEPATITIS C
     Route: 058
     Dates: start: 20100528, end: 20100910
  2. COPEGUS [Suspect]
     Indication: HEPATITIS C
     Route: 065
     Dates: start: 20100528, end: 20100922

REACTIONS (3)
  - CEREBELLAR SYNDROME [None]
  - HEPATIC ENZYME INCREASED [None]
  - OSMOTIC DEMYELINATION SYNDROME [None]
